FAERS Safety Report 4524428-4 (Version None)
Quarter: 2004Q4

REPORT INFORMATION
  Report Type: 
  Country: None (occurrence: None)
  Receive Date: 20041116
  Receipt Date: 20041026
  Transmission Date: 20050328
  Serious: Yes (Hospitalization)
  Sender: FDA-Public Use
  Company Number: PHEH2004US09373

PATIENT
  Age: 57 Year
  Sex: Female

DRUGS (4)
  1. GLEEVEC [Suspect]
     Indication: CHRONIC MYELOID LEUKAEMIA
     Dosage: SEE IMAGE, ORAL
     Route: 048
     Dates: start: 20030801, end: 20030822
  2. GLEEVEC [Suspect]
     Indication: CHRONIC MYELOID LEUKAEMIA
     Dosage: SEE IMAGE, ORAL
     Route: 048
     Dates: start: 20040927
  3. ATENOLOL [Concomitant]
  4. FAMOTIIDNE [Concomitant]

REACTIONS (4)
  - ASPIRATION PLEURAL CAVITY [None]
  - CHEST PAIN [None]
  - DYSPNOEA [None]
  - PLEURAL EFFUSION [None]
